FAERS Safety Report 14193566 (Version 1)
Quarter: 2017Q4

REPORT INFORMATION
  Report Type: Spontaneous
  Country: US (occurrence: US)
  Receive Date: 20171115
  Receipt Date: 20171115
  Transmission Date: 20180321
  Serious: Yes (Other)
  Sender: FDA-Public Use
  Company Number: US-INCYTE CORPORATION-2017IN009680

PATIENT

DRUGS (1)
  1. JAKAFI [Suspect]
     Active Substance: RUXOLITINIB
     Indication: MYELODYSPLASTIC SYNDROME
     Dosage: NOT SPECIFIED
     Route: 048
     Dates: start: 201707

REACTIONS (3)
  - Off label use [Unknown]
  - Platelet count increased [Unknown]
  - Haemoglobin decreased [Unknown]
